FAERS Safety Report 17899504 (Version 1)
Quarter: 2020Q2

REPORT INFORMATION
  Report Type: Spontaneous
  Country: GB (occurrence: GB)
  Receive Date: 20200616
  Receipt Date: 20200616
  Transmission Date: 20200714
  Serious: Yes (Other)
  Sender: FDA-Public Use
  Company Number: GB-EMD SERONO-9168478

PATIENT
  Sex: Female

DRUGS (1)
  1. SAIZEN [Suspect]
     Active Substance: SOMATROPIN
     Indication: GROWTH HORMONE DEFICIENCY
     Dosage: SAIZEN 6MG/1.03ML SOLUTION FOR INJECTION CARTRIDGES
     Route: 058
     Dates: start: 20170622

REACTIONS (1)
  - Brain neoplasm [Unknown]
